FAERS Safety Report 23209569 (Version 1)
Quarter: 2023Q4

REPORT INFORMATION
  Report Type: Spontaneous
  Country: FR (occurrence: FR)
  Receive Date: 20231121
  Receipt Date: 20231121
  Transmission Date: 20240109
  Serious: Yes (Hospitalization, Other)
  Sender: FDA-Public Use
  Company Number: FR-AFSSAPS-RN2023001202

PATIENT
  Age: 10 Year
  Sex: Female

DRUGS (3)
  1. CEFTRIAXONE [Suspect]
     Active Substance: CEFTRIAXONE\CEFTRIAXONE SODIUM
     Indication: Bacterial infection
     Dosage: UNK
     Route: 065
     Dates: start: 20230920, end: 20230925
  2. METRONIDAZOLE [Suspect]
     Active Substance: METRONIDAZOLE
     Indication: Bacterial infection
     Dosage: UNK
     Route: 048
     Dates: start: 20230920, end: 20230926
  3. VISIPAQUE [Suspect]
     Active Substance: IODIXANOL
     Indication: Scan
     Dosage: 2 DOSAGE FORM (1 INJECTION ON 09/21 AND 09/24)
     Route: 042
     Dates: start: 20230921, end: 20230924

REACTIONS (1)
  - Acute generalised exanthematous pustulosis [Recovering/Resolving]

NARRATIVE: CASE EVENT DATE: 20230924
